FAERS Safety Report 5218974-8 (Version None)
Quarter: 2007Q1

REPORT INFORMATION
  Report Type: 
  Country: None (occurrence: None)
  Receive Date: 20070125
  Receipt Date: 20070112
  Transmission Date: 20070707
  Serious: Yes (Congenital Anomaly)
  Sender: FDA-Public Use
  Company Number: PHBS2007CH00845

PATIENT
  Age: 1 Day
  Sex: Female
  Weight: 3.83 kg

DRUGS (4)
  1. TEGRETOL [Suspect]
     Dosage: MATERNAL DOSE 200 TO 400 MG/DAY
     Route: 064
  2. FOLIC ACID [Concomitant]
     Route: 064
  3. VITAMIN D [Concomitant]
  4. VITAMIN K [Concomitant]
     Route: 064

REACTIONS (4)
  - DRUG EXPOSURE DURING PREGNANCY [None]
  - LIMB MALFORMATION [None]
  - TALIPES [None]
  - URINARY TRACT MALFORMATION [None]
